FAERS Safety Report 18299241 (Version 19)
Quarter: 2024Q1

REPORT INFORMATION
  Report Type: Report from Study
  Country: US (occurrence: US)
  Receive Date: 20200923
  Receipt Date: 20240314
  Transmission Date: 20240410
  Serious: Yes (Hospitalization, Other)
  Sender: FDA-Public Use
  Company Number: US-SHIRE-US202030911

PATIENT
  Sex: Female
  Weight: 88 kg

DRUGS (29)
  1. HUMAN IMMUNOGLOBULIN G [Suspect]
     Active Substance: HUMAN IMMUNOGLOBULIN G
     Indication: Immunodeficiency common variable
     Dosage: 10 GRAM, 1/WEEK
     Route: 058
     Dates: start: 20120605
  2. HUMAN IMMUNOGLOBULIN G [Suspect]
     Active Substance: HUMAN IMMUNOGLOBULIN G
     Dosage: 40 GRAM, Q4WEEKS
     Route: 042
     Dates: start: 20210402
  3. HUMAN IMMUNOGLOBULIN G [Suspect]
     Active Substance: HUMAN IMMUNOGLOBULIN G
     Dosage: 40 GRAM, Q4WEEKS
     Route: 042
  4. HUMAN IMMUNOGLOBULIN G [Suspect]
     Active Substance: HUMAN IMMUNOGLOBULIN G
     Dosage: 10 GRAM, 1/WEEK
     Route: 058
  5. COVID-19 VACCINE NOS [Suspect]
     Active Substance: COVID-19 VACCINE NOS
     Indication: Product used for unknown indication
     Dosage: UNK
     Route: 065
  6. ACETAMINOPHEN [Concomitant]
     Active Substance: ACETAMINOPHEN
     Dosage: UNK
     Route: 065
  7. ELIQUIS [Concomitant]
     Active Substance: APIXABAN
     Dosage: UNK
     Route: 065
  8. LIDOCAINE [Concomitant]
     Active Substance: LIDOCAINE
     Dosage: UNK
     Route: 065
  9. LIDOCAINE\PRILOCAINE [Concomitant]
     Active Substance: LIDOCAINE\PRILOCAINE
     Dosage: UNK
     Route: 065
  10. PREDNISONE [Concomitant]
     Active Substance: PREDNISONE
     Dosage: UNK
     Route: 065
  11. DIPHENHYDRAMINE [Concomitant]
     Active Substance: DIPHENHYDRAMINE
     Dosage: UNK
     Route: 065
  12. IBUPROFEN [Concomitant]
     Active Substance: IBUPROFEN
     Dosage: UNK
     Route: 065
  13. OMEPRAZOLE [Concomitant]
     Active Substance: OMEPRAZOLE
     Dosage: UNK
     Route: 065
  14. ORENCIA [Concomitant]
     Active Substance: ABATACEPT
     Dosage: UNK
     Route: 065
  15. CELEBREX [Concomitant]
     Active Substance: CELECOXIB
     Dosage: UNK
     Route: 065
  16. DIOVAN [Concomitant]
     Active Substance: VALSARTAN
     Dosage: UNK
     Route: 065
  17. VERAPAMIL [Concomitant]
     Active Substance: VERAPAMIL HYDROCHLORIDE
     Dosage: UNK
     Route: 065
  18. NIACIN [Concomitant]
     Active Substance: NIACIN
     Dosage: UNK
     Route: 065
  19. MELOXICAM [Concomitant]
     Active Substance: MELOXICAM
     Dosage: UNK
     Route: 065
  20. HYDROCHLOROTHIAZIDE [Concomitant]
     Active Substance: HYDROCHLOROTHIAZIDE
     Dosage: UNK
     Route: 065
  21. MAGNESIUM [Concomitant]
     Active Substance: MAGNESIUM
     Dosage: UNK
     Route: 065
  22. EPINEPHRINE [Concomitant]
     Active Substance: EPINEPHRINE
     Dosage: UNK
     Route: 065
  23. BONE MEAL-D [Concomitant]
     Dosage: UNK
     Route: 065
  24. FISH OIL [Concomitant]
     Active Substance: FISH OIL
     Dosage: UNK
     Route: 065
  25. SODIUM CHLORIDE [Concomitant]
     Active Substance: SODIUM CHLORIDE
     Dosage: UNK
     Route: 065
  26. DOXYCYCLINE HYCLATE [Concomitant]
     Active Substance: DOXYCYCLINE HYCLATE
     Dosage: UNK
     Route: 065
  27. FISH OIL\OMEGA-3 FATTY ACIDS [Concomitant]
     Active Substance: FISH OIL\OMEGA-3 FATTY ACIDS
     Dosage: UNK
     Route: 065
  28. ADVIL [Concomitant]
     Active Substance: IBUPROFEN
     Dosage: UNK
     Route: 065
  29. Cerefolin NAC [Concomitant]
     Dosage: UNK
     Route: 065

REACTIONS (22)
  - Respiratory syncytial virus infection [Unknown]
  - Illness [Unknown]
  - Neoplasm malignant [Unknown]
  - Rheumatoid arthritis [Unknown]
  - Pneumonia [Unknown]
  - Pulmonary congestion [Unknown]
  - Infusion related reaction [Unknown]
  - Limb injury [Unknown]
  - Cystitis [Unknown]
  - Gastroenteritis viral [Unknown]
  - Weight decreased [Unknown]
  - Fall [Recovering/Resolving]
  - Joint injury [Recovering/Resolving]
  - Chronic obstructive pulmonary disease [Unknown]
  - Muscular weakness [Unknown]
  - Tremor [Unknown]
  - Chills [Unknown]
  - Dermatitis contact [Unknown]
  - Vaccination site bruising [Unknown]
  - Product dose omission issue [Unknown]
  - Inappropriate schedule of product administration [Unknown]
  - Product use issue [Unknown]
